FAERS Safety Report 10570145 (Version 1)
Quarter: 2014Q4

REPORT INFORMATION
  Report Type: Spontaneous
  Country: IT (occurrence: None)
  Receive Date: 20141105
  Receipt Date: 20141105
  Transmission Date: 20150529
  Serious: Yes (Other)
  Sender: FDA-Public Use
  Company Number: 2014100061

PATIENT
  Sex: Female

DRUGS (3)
  1. FLUOROCORTISONE (FLUOROCORTISONE) [Suspect]
     Active Substance: FLUDROCORTISONE
     Indication: ADRENAL INSUFFICIENCY
     Dosage: 0.2 MG, DAILY
  2. HYDROCORTISONE (HYDROCORTISONE) [Suspect]
     Active Substance: HYDROCORTISONE
     Indication: ADRENAL INSUFFICIENCY
     Dosage: 15 MG/M2, DAILY?
  3. POLYETHYLENE GLYCOL [Suspect]
     Active Substance: POLYETHYLENE GLYCOLS
     Indication: CONSTIPATION
     Dosage: 2 IN 1 D?

REACTIONS (10)
  - Hypotonia [None]
  - Blood potassium increased [None]
  - Renin increased [None]
  - Hypoglycaemia [None]
  - Blood sodium decreased [None]
  - Adrenocortical insufficiency acute [None]
  - Lethargy [None]
  - Blood chloride decreased [None]
  - Respiratory tract infection [None]
  - Asthenia [None]
